FAERS Safety Report 15468366 (Version 10)
Quarter: 2021Q4

REPORT INFORMATION
  Report Type: Report from Study
  Country: AR (occurrence: AR)
  Receive Date: 20181005
  Receipt Date: 20211117
  Transmission Date: 20220303
  Serious: Yes (Hospitalization, Other)
  Sender: FDA-Public Use
  Company Number: PHHY2018AR090076

PATIENT
  Age: 60 Year
  Sex: Female

DRUGS (5)
  1. COSENTYX [Suspect]
     Active Substance: SECUKINUMAB
     Indication: Psoriasis
     Dosage: 300 MG, QMO
     Route: 058
     Dates: start: 20180402
  2. COSENTYX [Suspect]
     Active Substance: SECUKINUMAB
     Indication: Psoriatic arthropathy
     Dosage: 300 MG, QMO
     Route: 058
  3. CARVEDILOL [Concomitant]
     Active Substance: CARVEDILOL
     Indication: Product used for unknown indication
     Dosage: UNK
     Route: 065
  4. LOSARTAN [Concomitant]
     Active Substance: LOSARTAN
     Indication: Product used for unknown indication
     Dosage: UNK
     Route: 065
  5. SPIRONOLACTONE [Concomitant]
     Active Substance: SPIRONOLACTONE
     Indication: Product used for unknown indication
     Dosage: UNK
     Route: 065

REACTIONS (41)
  - Haemorrhoids [Not Recovered/Not Resolved]
  - Pneumonia viral [Recovered/Resolved]
  - Productive cough [Not Recovered/Not Resolved]
  - Nasal congestion [Unknown]
  - Condition aggravated [Not Recovered/Not Resolved]
  - Inflammation [Not Recovered/Not Resolved]
  - Fall [Unknown]
  - Diarrhoea [Not Recovered/Not Resolved]
  - Delirium [Unknown]
  - Gastrointestinal inflammation [Unknown]
  - Nutritional condition abnormal [Not Recovered/Not Resolved]
  - Influenza like illness [Unknown]
  - Asthenia [Recovered/Resolved]
  - Epistaxis [Unknown]
  - Blood glucose increased [Not Recovered/Not Resolved]
  - Hypersensitivity [Recovered/Resolved]
  - COVID-19 [Recovered/Resolved]
  - Lung disorder [Unknown]
  - Asthenia [Recovering/Resolving]
  - Hypersensitivity [Unknown]
  - Pyrexia [Unknown]
  - Stress [Unknown]
  - Dengue fever [Unknown]
  - Headache [Unknown]
  - Mental disorder [Unknown]
  - Fatigue [Unknown]
  - Cough [Unknown]
  - Dental caries [Unknown]
  - COVID-19 [Recovered/Resolved]
  - Memory impairment [Unknown]
  - Skin discolouration [Unknown]
  - Drug intolerance [Unknown]
  - Arthritis [Unknown]
  - Pruritus [Not Recovered/Not Resolved]
  - Psoriasis [Unknown]
  - Nasopharyngitis [Recovered/Resolved]
  - Rash macular [Unknown]
  - Arthralgia [Not Recovered/Not Resolved]
  - Wrong technique in product usage process [Unknown]
  - Therapeutic product effect decreased [Unknown]
  - Drug ineffective [Unknown]

NARRATIVE: CASE EVENT DATE: 20180401
